FAERS Safety Report 4523810-9 (Version None)
Quarter: 2004Q4

REPORT INFORMATION
  Report Type: 
  Country: None (occurrence: None)
  Receive Date: 20041210
  Receipt Date: 20041210
  Transmission Date: 20050328
  Serious: Yes (Other)
  Sender: FDA-Public Use
  Company Number: None

PATIENT
  Age: 73 Year
  Sex: Female

DRUGS (3)
  1. SINEMET [Suspect]
     Dosage: 1 BID
     Dates: start: 20041107, end: 20041202
  2. SYNTHROID [Concomitant]
  3. OXYBUTNIN [Concomitant]

REACTIONS (3)
  - CONDITION AGGRAVATED [None]
  - PHARMACEUTICAL PRODUCT COMPLAINT [None]
  - TREMOR [None]
